FAERS Safety Report 5331815-3 (Version None)
Quarter: 2007Q2

REPORT INFORMATION
  Report Type: 
  Country: None (occurrence: None)
  Receive Date: 20070518
  Receipt Date: 20070511
  Transmission Date: 20071010
  Serious: Yes (Hospitalization)
  Sender: FDA-Public Use
  Company Number: 2007RL000205

PATIENT
  Age: 77 Year
  Sex: Male

DRUGS (4)
  1. ISRADIPINE [Suspect]
     Indication: HYPERTENSION
     Dosage: 5 MG;QD;
  2. ANOPYRIN [Concomitant]
  3. ANDROCUR [Concomitant]
  4. DOXAZOSIIN [Concomitant]

REACTIONS (1)
  - DERMATITIS ALLERGIC [None]
